FAERS Safety Report 24223609 (Version 1)
Quarter: 2024Q3

REPORT INFORMATION
  Report Type: Spontaneous
  Country: US (occurrence: None)
  Receive Date: 20240819
  Receipt Date: 20240819
  Transmission Date: 20241017
  Serious: No
  Sender: Public
  Company Number: None

PATIENT
  Age: 50 Year
  Sex: Female
  Weight: 68.04 kg

DRUGS (1)
  1. ENBREL [Suspect]
     Active Substance: BENZYL ALCOHOL\ETANERCEPT
     Indication: Psoriasis
     Dosage: FREQUENCY : AS DIRECTED;?
     Route: 058
     Dates: start: 202103

REACTIONS (4)
  - Bacterial vaginosis [None]
  - Therapy interrupted [None]
  - Abnormal faeces [None]
  - Abdominal pain upper [None]
